FAERS Safety Report 9103189 (Version 1)
Quarter: 2013Q1

REPORT INFORMATION
  Report Type: Report from Study
  Country: FR (occurrence: FR)
  Receive Date: 20130218
  Receipt Date: 20130218
  Transmission Date: 20140127
  Serious: Yes (Hospitalization, Other)
  Sender: FDA-Public Use
  Company Number: FR-009507513-1302FRA003630

PATIENT
  Age: 44 Year
  Sex: Male
  Weight: 64 kg

DRUGS (11)
  1. ISENTRESS [Suspect]
     Indication: HIV INFECTION
     Dosage: UNK
     Route: 048
     Dates: start: 20120713, end: 20120717
  2. LEDERFOLINE [Suspect]
     Dosage: UNK
     Dates: start: 20120705
  3. TRUVADA [Suspect]
     Indication: HIV INFECTION
     Dosage: 200MG/245MG
     Route: 048
     Dates: start: 20120705, end: 20120707
  4. TRUVADA [Suspect]
     Dosage: 200MG/245MG 2 DF, QD
     Dates: start: 20120713, end: 20120717
  5. MALOCIDE [Suspect]
     Indication: PROPHYLAXIS
     Dosage: 100 MG, QD
     Dates: start: 20120705, end: 20120717
  6. MALOCIDE [Suspect]
     Indication: TOXOPLASMOSIS
  7. CELSENTRI [Suspect]
     Indication: HIV INFECTION
     Dosage: 150 UNIT UNKNOWN, BID
     Dates: start: 20120705, end: 20120707
  8. CELSENTRI [Suspect]
     Dosage: 300 UNIT UNKNOWN, BID
     Dates: start: 20120713, end: 20120717
  9. REYATAZ [Suspect]
     Indication: HIV INFECTION
     Dosage: 300 MG, QD
     Dates: start: 20120705, end: 20120707
  10. NORVIR [Suspect]
     Indication: HIV INFECTION
     Dosage: 100 MG, QD
     Dates: start: 20120705, end: 20120707
  11. PENTACARINAT [Suspect]
     Indication: PRODUCT USED FOR UNKNOWN INDICATION
     Dosage: UNK
     Dates: start: 20120623, end: 20120717

REACTIONS (12)
  - Nausea [Recovered/Resolved]
  - Fatigue [Unknown]
  - Diarrhoea [Recovered/Resolved]
  - Seborrhoeic dermatitis [Unknown]
  - Jaundice [Recovered/Resolved]
  - Hyperbilirubinaemia [Unknown]
  - Toxic skin eruption [Unknown]
  - Pancytopenia [Recovering/Resolving]
  - Rash generalised [Recovering/Resolving]
  - Pruritus [Recovering/Resolving]
  - Enanthema [Recovering/Resolving]
  - Skin exfoliation [Unknown]
